FAERS Safety Report 7573655-0 (Version None)
Quarter: 2011Q2

REPORT INFORMATION
  Report Type: 
  Country: None (occurrence: None)
  Receive Date: 20110627
  Receipt Date: 20110616
  Transmission Date: 20111010
  Serious: Yes (Life-Threatening, Hospitalization, Other)
  Sender: FDA-Public Use
  Company Number: DE-ROCHE-778537

PATIENT
  Sex: Female
  Weight: 60 kg

DRUGS (5)
  1. PANTOPRAZOLE [Concomitant]
     Indication: PROPHYLAXIS
     Route: 048
  2. SIMVASTATIN [Concomitant]
     Indication: HYPERLIPIDAEMIA
     Route: 048
  3. ACTEMRA [Suspect]
     Indication: TEMPORAL ARTERITIS
     Dosage: GIVEN ONCE
     Route: 042
     Dates: start: 20110421, end: 20110421
  4. RAMIPRIL [Concomitant]
     Indication: HYPERTENSION
     Route: 048
  5. EMBOLEX [Concomitant]
     Indication: THROMBOSIS PROPHYLAXIS
     Route: 058
     Dates: start: 20110330

REACTIONS (2)
  - BONE MARROW TOXICITY [None]
  - AGRANULOCYTOSIS [None]
